FAERS Safety Report 8459713-7 (Version None)
Quarter: 2012Q2

REPORT INFORMATION
  Report Type: 
  Country: None (occurrence: None)
  Receive Date: 20120622
  Receipt Date: 20120615
  Transmission Date: 20120825
  Serious: Yes (Other)
  Sender: FDA-Public Use
  Company Number: ZA-JNJFOC-20120609043

PATIENT
  Sex: Female

DRUGS (2)
  1. REVELLEX [Suspect]
     Indication: COLITIS ULCERATIVE
     Dosage: 2ND INDUCTION DOSE; DAT NOT SPECIFIED
     Route: 042
     Dates: start: 20120101
  2. REVELLEX [Suspect]
     Dosage: 1ST INDUCTION DOSE
     Route: 042
     Dates: start: 20120509

REACTIONS (3)
  - MENORRHAGIA [None]
  - LARGE INTESTINAL HAEMORRHAGE [None]
  - MENSTRUATION IRREGULAR [None]
